FAERS Safety Report 12677516 (Version 2)
Quarter: 2016Q3

REPORT INFORMATION
  Report Type: Spontaneous
  Country: US (occurrence: US)
  Receive Date: 20160823
  Receipt Date: 20160826
  Transmission Date: 20161109
  Serious: Yes (Hospitalization)
  Sender: FDA-Public Use
  Company Number: US-PFIZER INC-2016393125

PATIENT
  Age: 58 Year
  Sex: Female
  Weight: 71.2 kg

DRUGS (3)
  1. LYRICA [Suspect]
     Active Substance: PREGABALIN
     Dosage: 400 MG, DAILY(50 MG THREE TIMES A DAY, MORNING, DINNER TIME AND 300 MG AT NIGHT/NOT TAKE LUNCH DOSE)
  2. LYRICA [Suspect]
     Active Substance: PREGABALIN
     Indication: FIBROMYALGIA
     Dosage: 450 MG, DAILY (50 MG THREE TIMES A DAY, MORNING, LUNCH AND DINNER TIME AND 300 MG AT NIGHT)
  3. CELEBREX [Concomitant]
     Active Substance: CELECOXIB
     Indication: ARTHRITIS
     Dosage: 200 MG, 1X/DAY

REACTIONS (6)
  - Intentional product use issue [Unknown]
  - Condition aggravated [Unknown]
  - Initial insomnia [Not Recovered/Not Resolved]
  - Fibromyalgia [Unknown]
  - Pain [Not Recovered/Not Resolved]
  - Blood pressure increased [Unknown]

NARRATIVE: CASE EVENT DATE: 20160710
